FAERS Safety Report 18087563 (Version 3)
Quarter: 2020Q4

REPORT INFORMATION
  Report Type: Spontaneous
  Country: US (occurrence: US)
  Receive Date: 20200729
  Receipt Date: 20201026
  Transmission Date: 20210113
  Serious: No
  Sender: FDA-Public Use
  Company Number: US-GLAXOSMITHKLINE-US2020AMR144085

PATIENT
  Sex: Female

DRUGS (3)
  1. ZEJULA [Suspect]
     Active Substance: NIRAPARIB
     Indication: OVARIAN CANCER
     Dosage: 200 MG (100 MG CAPSULES)
     Dates: start: 20200716
  2. ZEJULA [Suspect]
     Active Substance: NIRAPARIB
     Dosage: 200 MG (100 MG CAPSULES)
  3. ZEJULA [Suspect]
     Active Substance: NIRAPARIB
     Dosage: 100 MG

REACTIONS (4)
  - Blood pressure increased [Unknown]
  - Abdominal mass [Unknown]
  - Heart rate irregular [Unknown]
  - Product dose omission issue [Unknown]
